FAERS Safety Report 24830615 (Version 1)
Quarter: 2025Q1

REPORT INFORMATION
  Report Type: Spontaneous
  Country: US (occurrence: None)
  Receive Date: 20250109
  Receipt Date: 20250109
  Transmission Date: 20250409
  Serious: No
  Sender: FDA-CTU
  Company Number: None

PATIENT
  Age: 9 Week
  Sex: Male
  Weight: 6.039 kg

DRUGS (1)
  1. BEYFORTUS [Suspect]
     Active Substance: NIRSEVIMAB-ALIP
     Indication: Immunisation
     Route: 030
     Dates: start: 20250107, end: 20250107

REACTIONS (1)
  - Product use issue [None]

NARRATIVE: CASE EVENT DATE: 20250107
